FAERS Safety Report 18106453 (Version 1)
Quarter: 2020Q3

REPORT INFORMATION
  Report Type: Spontaneous
  Country: US (occurrence: US)
  Receive Date: 20200803
  Receipt Date: 20200803
  Transmission Date: 20201103
  Serious: Yes (Hospitalization, Disabling)
  Sender: FDA-Public Use
  Company Number: None

PATIENT
  Age: 53 Year
  Sex: Female
  Weight: 89.1 kg

DRUGS (6)
  1. ATORVASTATIN [Concomitant]
     Active Substance: ATORVASTATIN
  2. LEVOTHYROXINE. [Concomitant]
     Active Substance: LEVOTHYROXINE
  3. MILK OF MAGNESIA [Concomitant]
     Active Substance: MAGNESIUM HYDROXIDE
  4. DOXYCYCLINE HYCLATE 100MG CAPSULES [Suspect]
     Active Substance: DOXYCYCLINE HYCLATE
     Indication: SINUSITIS
     Dosage: ?          QUANTITY:1 CAPSULE(S);?
     Route: 048
  5. INSULIN PUMP [Concomitant]
     Active Substance: DEVICE\INSULIN NOS
  6. HUMALOG [Concomitant]
     Active Substance: INSULIN LISPRO

REACTIONS (13)
  - Diplopia [None]
  - Headache [None]
  - Nausea [None]
  - Eye pain [None]
  - Vomiting [None]
  - Optic ischaemic neuropathy [None]
  - Eye swelling [None]
  - Ophthalmoplegia [None]
  - Blindness [None]
  - Eye movement disorder [None]
  - Vision blurred [None]
  - Photophobia [None]
  - Swelling face [None]

NARRATIVE: CASE EVENT DATE: 20200717
